FAERS Safety Report 8461824-7 (Version None)
Quarter: 2012Q2

REPORT INFORMATION
  Report Type: 
  Country: None (occurrence: None)
  Receive Date: 20120625
  Receipt Date: 20120613
  Transmission Date: 20120825
  Serious: Yes (Other)
  Sender: FDA-Public Use
  Company Number: TR-COVIDIEN/TYCO HEALTHCARE/MALLINCKRODT-T201202552

PATIENT
  Age: 61 Year
  Sex: Female
  Weight: 62 kg

DRUGS (1)
  1. PENNSAID [Suspect]
     Indication: BACK PAIN
     Dosage: UNK
     Route: 030

REACTIONS (3)
  - WRONG TECHNIQUE IN DRUG USAGE PROCESS [None]
  - COMPLEX REGIONAL PAIN SYNDROME [None]
  - SCIATIC NERVE INJURY [None]
